FAERS Safety Report 17566829 (Version 2)
Quarter: 2020Q1

REPORT INFORMATION
  Report Type: Spontaneous
  Country: CA (occurrence: CA)
  Receive Date: 20200320
  Receipt Date: 20200330
  Transmission Date: 20200409
  Serious: No
  Sender: FDA-Public Use
  Company Number: CA-BIOMARINAP-CA-2020-129219

PATIENT
  Age: 17 Year
  Sex: Female
  Weight: 34.9 kg

DRUGS (6)
  1. LISINOPRIL. [Concomitant]
     Active Substance: LISINOPRIL
     Indication: PRODUCT USED FOR UNKNOWN INDICATION
     Dosage: UNK
     Dates: start: 20191015
  2. IBUPROFEN. [Concomitant]
     Active Substance: IBUPROFEN
     Indication: SURGERY
  3. PARACETAMOL [Concomitant]
     Active Substance: ACETAMINOPHEN
     Indication: SURGERY
  4. FUROSEMIDE. [Concomitant]
     Active Substance: FUROSEMIDE
     Indication: PRODUCT USED FOR UNKNOWN INDICATION
     Dosage: UNK
     Dates: start: 20191015
  5. ALDURAZYME [Suspect]
     Active Substance: LARONIDASE
     Indication: MUCOPOLYSACCHARIDOSIS I
     Dosage: 0.65 KILOGRAM, QW
     Route: 041
     Dates: start: 20071201
  6. WARFARIN [Concomitant]
     Active Substance: WARFARIN
     Indication: SURGERY

REACTIONS (1)
  - Procedural headache [Recovered/Resolved]

NARRATIVE: CASE EVENT DATE: 2020
